FAERS Safety Report 4645991-9 (Version None)
Quarter: 2005Q2

REPORT INFORMATION
  Report Type: 
  Country: None (occurrence: None)
  Receive Date: 20050425
  Receipt Date: 20050411
  Transmission Date: 20051028
  Serious: Yes (Other)
  Sender: FDA-Public Use
  Company Number: 2005057716

PATIENT
  Age: 65 Year
  Sex: Female
  Weight: 77.1115 kg

DRUGS (3)
  1. CELEBREX [Suspect]
     Indication: ARTHRITIS
     Dosage: ORAL
     Route: 048
  2. PROPRANOLOL [Concomitant]
  3. ATORVASTATIN CALCIUM [Concomitant]

REACTIONS (5)
  - PAIN [None]
  - RASH MACULO-PAPULAR [None]
  - SCAR [None]
  - SKIN DISORDER [None]
  - VASCULITIS [None]
